FAERS Safety Report 8866220 (Version 1)
Quarter: 2012Q4

REPORT INFORMATION
  Report Type: 
  Country: FR (occurrence: FR)
  Receive Date: 20121025
  Receipt Date: 20121025
  Transmission Date: 20130627
  Serious: Yes (Other)
  Sender: FDA-Public Use
  Company Number: FR-PFIZER INC-2012260333

PATIENT
  Age: 60 Year
  Sex: Female

DRUGS (1)
  1. CAVERJECT [Suspect]
     Route: 050

REACTIONS (10)
  - Exposure via partner [Unknown]
  - Vulvovaginal injury [Unknown]
  - Hypersensitivity [Unknown]
  - Vulvovaginal burning sensation [Unknown]
  - Vulvovaginal burning sensation [Unknown]
  - Accidental exposure to product [Unknown]
  - Injury [Unknown]
  - Swelling [Unknown]
  - Burning sensation [Unknown]
  - Erythema [Unknown]
